FAERS Safety Report 6898900-6 (Version None)
Quarter: 2010Q3

REPORT INFORMATION
  Report Type: 
  Country: None (occurrence: None)
  Receive Date: 20100802
  Receipt Date: 20071213
  Transmission Date: 20110219
  Serious: No
  Sender: FDA-Public Use
  Company Number: US-PFIZER INC-2007104056

PATIENT
  Sex: Male
  Weight: 117.9 kg

DRUGS (11)
  1. LYRICA [Suspect]
     Indication: NEUROPATHY PERIPHERAL
     Route: 048
     Dates: start: 20071027
  2. NEURONTIN [Suspect]
     Indication: NEUROPATHY PERIPHERAL
  3. GABAPENTIN [Suspect]
     Indication: NEUROPATHY PERIPHERAL
     Dates: end: 20070101
  4. OXYCODONE [Concomitant]
  5. PLAVIX [Concomitant]
  6. ZOCOR [Concomitant]
  7. LOTREL [Concomitant]
  8. ATENOLOL [Concomitant]
  9. ZOLOFT [Concomitant]
  10. STOOL SOFTENER [Concomitant]
  11. MULTI-VITAMINS [Concomitant]

REACTIONS (3)
  - DRUG INEFFECTIVE [None]
  - ENURESIS [None]
  - POLLAKIURIA [None]
